FAERS Safety Report 9596286 (Version 3)
Quarter: 2013Q4

REPORT INFORMATION
  Report Type: Spontaneous
  Country: US (occurrence: US)
  Receive Date: 20131004
  Receipt Date: 20131111
  Transmission Date: 20140711
  Serious: Yes (Other)
  Sender: FDA-Public Use
  Company Number: US-JNJFOC-20130916861

PATIENT
  Age: 62 Year
  Sex: Male
  Weight: 115.12 kg

DRUGS (18)
  1. XARELTO [Suspect]
     Indication: CEREBROVASCULAR ACCIDENT PROPHYLAXIS
     Route: 048
     Dates: start: 20130522, end: 20130801
  2. XARELTO [Suspect]
     Indication: CEREBROVASCULAR ACCIDENT PROPHYLAXIS
     Route: 048
     Dates: start: 2013, end: 2013
  3. XARELTO [Suspect]
     Indication: ATRIAL FIBRILLATION
     Route: 048
     Dates: start: 20130522, end: 20130801
  4. XARELTO [Suspect]
     Indication: ATRIAL FIBRILLATION
     Route: 048
     Dates: start: 2013, end: 2013
  5. ASPIRIN [Suspect]
     Indication: PRODUCT USED FOR UNKNOWN INDICATION
     Route: 048
  6. PLAVIX [Suspect]
     Indication: PRODUCT USED FOR UNKNOWN INDICATION
     Route: 065
  7. FISH OIL [Concomitant]
     Route: 048
  8. DULERA [Concomitant]
     Route: 055
  9. CLARITHROMYCIN [Concomitant]
     Route: 048
  10. MAXZIDE [Concomitant]
     Indication: DIURETIC THERAPY
     Dosage: 37.5- 25MG DAILY IN AM
     Route: 048
  11. AMLODIPINE BESYLATE [Concomitant]
     Route: 048
  12. LISINOPRIL [Concomitant]
     Route: 048
  13. CARDIZEM [Concomitant]
     Route: 048
  14. PRAVACHOL [Concomitant]
     Route: 048
  15. NOVOLIN 70/30 [Concomitant]
     Dosage: 100 UNITS/ML
     Route: 058
  16. METFORMIN HCL [Concomitant]
     Route: 048
  17. METOPROLOL SUCCINATE EXTENDED RELEASE [Concomitant]
     Route: 048
  18. GLIMEPIRIDE [Concomitant]
     Route: 048

REACTIONS (2)
  - Lymphadenopathy [Not Recovered/Not Resolved]
  - Haematuria [Not Recovered/Not Resolved]
